FAERS Safety Report 10872262 (Version 1)
Quarter: 2015Q1

REPORT INFORMATION
  Report Type: Spontaneous
  Country: None (occurrence: None)
  Receive Date: 20150220
  Receipt Date: 20150220
  Transmission Date: 20150721
  Serious: No
  Sender: FDA-Public Use
  Company Number: None

PATIENT
  Age: 45 Year
  Sex: Female

DRUGS (1)
  1. COPAXONE [Suspect]
     Active Substance: GLATIRAMER ACETATE
     Indication: MULTIPLE SCLEROSIS
     Route: 058
     Dates: start: 20120308

REACTIONS (5)
  - Chills [None]
  - Tremor [None]
  - Flushing [None]
  - Erythema [None]
  - Chest discomfort [None]

NARRATIVE: CASE EVENT DATE: 20150218
